FAERS Safety Report 7353202-9 (Version None)
Quarter: 2011Q1

REPORT INFORMATION
  Report Type: 
  Country: None (occurrence: None)
  Receive Date: 20110310
  Receipt Date: 20110310
  Transmission Date: 20110831
  Serious: Yes (Disabling, Other)
  Sender: FDA-Public Use
  Company Number: None

PATIENT
  Age: 48 Year
  Sex: Female
  Weight: 60.9 kg

DRUGS (1)
  1. LORAZEPAM [Suspect]
     Indication: ANXIETY
     Dosage: ONE-HALF TO 1 TAB; 120 TABLETS EVERY 6-8 HRS ASNEED ORALLY. SHOULD LAST ONE MONTH.
     Route: 048
     Dates: start: 20060501, end: 20110201

REACTIONS (12)
  - HALLUCINATION, AUDITORY [None]
  - MOVEMENT DISORDER [None]
  - AMNESIA [None]
  - ANXIETY [None]
  - ACTIVITIES OF DAILY LIVING IMPAIRED [None]
  - FEELING JITTERY [None]
  - TREMOR [None]
  - NERVOUS SYSTEM DISORDER [None]
  - CONVULSION [None]
  - DAYDREAMING [None]
  - VISION BLURRED [None]
  - GAIT DISTURBANCE [None]
